FAERS Safety Report 4819604-7 (Version None)
Quarter: 2005Q4

REPORT INFORMATION
  Report Type: 
  Country: None (occurrence: None)
  Receive Date: 20051103
  Receipt Date: 20050921
  Transmission Date: 20060501
  Serious: Yes (Death, Life-Threatening)
  Sender: FDA-Public Use
  Company Number: ZA-NOVOPROD-247127

PATIENT
  Age: 74 Year
  Sex: Male
  Weight: 69 kg

DRUGS (6)
  1. NOVOMIX 30 [Suspect]
     Indication: DIABETES MELLITUS NON-INSULIN-DEPENDENT
     Dosage: 6 IU, QD
     Dates: start: 20041212, end: 20050207
  2. ECOTRIN [Concomitant]
     Route: 048
  3. PLENISH-K [Concomitant]
     Route: 048
  4. ULTIMAG [Concomitant]
     Route: 048
  5. ADALAT [Concomitant]
     Dosage: 30 MG, UNK
     Route: 048
  6. CALCIUM ^HEXAL^ [Concomitant]
     Route: 048

REACTIONS (1)
  - RENAL FAILURE [None]
